FAERS Safety Report 7512427-X (Version None)
Quarter: 2011Q2

REPORT INFORMATION
  Report Type: 
  Country: None (occurrence: None)
  Receive Date: 20110531
  Receipt Date: 20110519
  Transmission Date: 20111010
  Serious: Yes (Other)
  Sender: FDA-Public Use
  Company Number: BR-ASTRAZENECA-2011SE31604

PATIENT
  Age: 26 Year
  Sex: Female
  Weight: 50 kg

DRUGS (1)
  1. BUDESONIDE [Suspect]
     Indication: PROCTOCOLITIS
     Route: 048
     Dates: start: 20100501, end: 20100601

REACTIONS (4)
  - DRUG PRESCRIBING ERROR [None]
  - GASTROINTESTINAL HAEMORRHAGE [None]
  - OFF LABEL USE [None]
  - TENSION HEADACHE [None]
